FAERS Safety Report 7402435-1 (Version None)
Quarter: 2011Q1

REPORT INFORMATION
  Report Type: 
  Country: None (occurrence: None)
  Receive Date: 20110331
  Receipt Date: 20110317
  Transmission Date: 20110831
  Serious: Yes (Hospitalization)
  Sender: FDA-Public Use
  Company Number: TPA2011A00917

PATIENT
  Sex: Male

DRUGS (2)
  1. CERTICAN [Suspect]
     Indication: RENAL TRANSPLANT
  2. ADENURIC (FEBUXOSTAT) [Suspect]
     Indication: HYPERURICAEMIA
     Dosage: 80 MG (80 MG,1-2, ORAL
     Route: 048
     Dates: start: 20101228, end: 20110201

REACTIONS (3)
  - OVERDOSE [None]
  - RENAL FAILURE ACUTE [None]
  - DRUG INTERACTION [None]
